FAERS Safety Report 8381425-9 (Version None)
Quarter: 2012Q2

REPORT INFORMATION
  Report Type: 
  Country: None (occurrence: None)
  Receive Date: 20120523
  Receipt Date: 20120511
  Transmission Date: 20120825
  Serious: Yes (Hospitalization)
  Sender: FDA-Public Use
  Company Number: DE-ROCHE-1068762

PATIENT
  Sex: Female
  Weight: 67 kg

DRUGS (5)
  1. HERCEPTIN [Suspect]
     Indication: BREAST CANCER
     Dosage: LAST DOSE PRIOR TO SAE 10 MAY 2012.
     Route: 042
     Dates: start: 20120111
  2. PACLITAXEL [Suspect]
     Indication: BREAST CANCER
     Dosage: LAST DOSE PRIOR TO SAE 24 APR 2012. TEMPORARILY INTERRUPTED.
     Route: 042
     Dates: start: 20120111, end: 20120430
  3. LAPATINIB [Suspect]
     Indication: BREAST CANCER
     Dosage: PERMANENTLY DISCONTINUED.
     Route: 048
     Dates: start: 20120111, end: 20120319
  4. DOXORUBICIN HYDROCHLORIDE [Suspect]
     Indication: BREAST CANCER
     Dosage: LAST DOSE PRIOR TO SAE 24 APR 2012. TEMPORARILY INTERRUPTED.
     Route: 042
     Dates: start: 20120111, end: 20120430
  5. CARBOPLATIN [Suspect]
     Indication: BREAST CANCER
     Dosage: AUC-2, LAST DOSE PRIOR TO SAE 24 APR 2012. TEMPORARILY INTERRUPTED.
     Route: 042
     Dates: start: 20120111, end: 20120430

REACTIONS (5)
  - CYSTITIS [None]
  - HYPOKALAEMIA [None]
  - HERPES SIMPLEX [None]
  - GENERAL PHYSICAL HEALTH DETERIORATION [None]
  - PYREXIA [None]
